FAERS Safety Report 13162152 (Version 3)
Quarter: 2022Q1

REPORT INFORMATION
  Report Type: Spontaneous
  Country: US (occurrence: US)
  Receive Date: 20170130
  Receipt Date: 20220210
  Transmission Date: 20220423
  Serious: No
  Sender: FDA-Public Use
  Company Number: US-PFIZER INC-2017040323

PATIENT
  Age: 77 Year
  Sex: Female

DRUGS (11)
  1. METHOTREXATE SODIUM [Suspect]
     Active Substance: METHOTREXATE SODIUM
     Dosage: UNK
  2. HEPARIN SODIUM [Suspect]
     Active Substance: HEPARIN SODIUM
     Dosage: UNK
  3. SULFASALAZINE [Suspect]
     Active Substance: SULFASALAZINE
     Dosage: UNK
  4. KLONOPIN [Suspect]
     Active Substance: CLONAZEPAM
     Dosage: UNK
  5. CARBIDOPA [Suspect]
     Active Substance: CARBIDOPA
     Dosage: UNK
  6. LEVODOPA [Suspect]
     Active Substance: LEVODOPA
     Dosage: UNK
  7. DULOXETINE [Suspect]
     Active Substance: DULOXETINE
     Dosage: UNK
  8. FOSAMAX [Suspect]
     Active Substance: ALENDRONATE SODIUM
     Dosage: UNK
  9. LEFLUNOMIDE [Suspect]
     Active Substance: LEFLUNOMIDE
     Dosage: UNK
  10. ROPINIROLE [Suspect]
     Active Substance: ROPINIROLE
     Dosage: UNK
  11. TRAZODONE [Suspect]
     Active Substance: TRAZODONE HYDROCHLORIDE
     Dosage: UNK

REACTIONS (1)
  - Drug hypersensitivity [Unknown]
